FAERS Safety Report 11398753 (Version 2)
Quarter: 2015Q4

REPORT INFORMATION
  Report Type: Spontaneous
  Country: CZ (occurrence: CZ)
  Receive Date: 20150820
  Receipt Date: 20151109
  Transmission Date: 20160304
  Serious: Yes (Hospitalization, Other)
  Sender: FDA-Public Use
  Company Number: CZ-AMGEN-CZESP2015083755

PATIENT
  Age: 70 Year
  Sex: Female

DRUGS (10)
  1. CITALON [Concomitant]
     Dosage: UNK
  2. ATROVENT [Concomitant]
     Active Substance: IPRATROPIUM BROMIDE
     Dosage: UNK
  3. EUPHYLLIN CR N [Concomitant]
     Dosage: 200 MG, 2X/DAY
  4. MEDROL [Concomitant]
     Active Substance: METHYLPREDNISOLONE
     Dosage: 2 MG, 1X/DAY
  5. ENBREL [Suspect]
     Active Substance: ETANERCEPT
     Indication: RHEUMATOID ARTHRITIS
     Dosage: 50 MG, WEEKLY
     Route: 058
     Dates: start: 20100109
  6. PROLIA [Concomitant]
     Active Substance: DENOSUMAB
     Dosage: 60 MG, UNK
  7. METHOTREXATE [Concomitant]
     Active Substance: METHOTREXATE
     Dosage: 17.5 MG, WEEKLY
  8. PANTOPRAZOLUM [Concomitant]
     Dosage: 20 MG, 1X/DAY
  9. MATRIFEN [Concomitant]
     Active Substance: FENTANYL
     Dosage: UNK
  10. CALCIUM CARBONATE W/COLECALCIFEROL [Concomitant]
     Active Substance: CALCIUM CARBONATE\CHOLECALCIFEROL
     Dosage: 1000MG/880IU

REACTIONS (6)
  - Nausea [Recovered/Resolved]
  - Strangulated hernia [Recovered/Resolved]
  - Vomiting [Recovered/Resolved]
  - Richter^s hernia [Recovered/Resolved]
  - Incarcerated hernia [Recovered/Resolved]
  - Asthenia [Recovered/Resolved]

NARRATIVE: CASE EVENT DATE: 20150528
